FAERS Safety Report 9220182 (Version 1)
Quarter: 2013Q2

REPORT INFORMATION
  Report Type: Spontaneous
  Country: US (occurrence: US)
  Receive Date: 20130409
  Receipt Date: 20130409
  Transmission Date: 20140414
  Serious: Yes (Hospitalization)
  Sender: FDA-Public Use
  Company Number: PHHY2012US128232

PATIENT
  Age: 61 Year
  Sex: Female

DRUGS (1)
  1. METRONIDAZOLE [Suspect]
     Indication: AUTOIMMUNE HEPATITIS

REACTIONS (6)
  - Toxic encephalopathy [Recovered/Resolved]
  - Movement disorder [Recovered/Resolved]
  - Tremor [Recovered/Resolved]
  - Chorea [Recovered/Resolved]
  - Ataxia [Recovered/Resolved]
  - Tic [Recovered/Resolved]
